FAERS Safety Report 20710982 (Version 2)
Quarter: 2022Q2

REPORT INFORMATION
  Report Type: Report from Study
  Country: KR (occurrence: KR)
  Receive Date: 20220414
  Receipt Date: 20220426
  Transmission Date: 20220721
  Serious: Yes (Hospitalization)
  Sender: FDA-Public Use
  Company Number: KR-JNJFOC-20211256557

PATIENT
  Sex: Female

DRUGS (22)
  1. GUSELKUMAB [Suspect]
     Active Substance: GUSELKUMAB
     Indication: Psoriasis
     Route: 065
     Dates: start: 20200625, end: 20200625
  2. GUSELKUMAB [Suspect]
     Active Substance: GUSELKUMAB
     Route: 065
     Dates: start: 20210722
  3. GUSELKUMAB [Suspect]
     Active Substance: GUSELKUMAB
     Route: 065
     Dates: start: 20200912, end: 20200912
  4. GUSELKUMAB [Suspect]
     Active Substance: GUSELKUMAB
     Route: 065
     Dates: start: 20201217, end: 20201217
  5. GUSELKUMAB [Suspect]
     Active Substance: GUSELKUMAB
     Route: 065
     Dates: start: 20210210, end: 20210210
  6. GUSELKUMAB [Suspect]
     Active Substance: GUSELKUMAB
     Route: 065
     Dates: start: 20210405, end: 20210405
  7. GUSELKUMAB [Suspect]
     Active Substance: GUSELKUMAB
     Route: 065
     Dates: start: 20210619, end: 20210619
  8. PELUBI [Concomitant]
     Indication: Arthralgia
     Route: 048
     Dates: start: 20200907, end: 20200914
  9. PELUBI [Concomitant]
     Route: 048
     Dates: start: 20200917, end: 20200930
  10. PELUBI [Concomitant]
     Dates: start: 20201012, end: 20201108
  11. PELUBI [Concomitant]
     Route: 048
     Dates: start: 20210107, end: 20210221
  12. PELUBI [Concomitant]
     Route: 048
     Dates: start: 20210121, end: 20210219
  13. LAFUTIDINE [Concomitant]
     Active Substance: LAFUTIDINE
     Indication: Prophylaxis
     Route: 048
     Dates: start: 20200907, end: 20200914
  14. LAFUTIDINE [Concomitant]
     Active Substance: LAFUTIDINE
     Route: 048
     Dates: start: 20200917, end: 20200930
  15. LAFUTIDINE [Concomitant]
     Active Substance: LAFUTIDINE
     Dates: start: 20201012, end: 20201130
  16. LAFUTIDINE [Concomitant]
     Active Substance: LAFUTIDINE
     Dates: start: 20210108, end: 20210221
  17. LAFUTIDINE [Concomitant]
     Active Substance: LAFUTIDINE
     Dates: start: 20210121, end: 20210219
  18. SHINBARO [Concomitant]
     Indication: Arthralgia
     Route: 048
     Dates: start: 20200907, end: 20200914
  19. SHINBARO [Concomitant]
     Route: 048
     Dates: start: 20200917, end: 20200930
  20. SHINBARO [Concomitant]
     Dates: start: 20201012, end: 20201130
  21. SHINBARO [Concomitant]
     Route: 048
     Dates: start: 20210108, end: 20210221
  22. SHINBARO [Concomitant]
     Route: 048
     Dates: start: 20210121, end: 20210219

REACTIONS (1)
  - Synovial cyst [Recovered/Resolved]

NARRATIVE: CASE EVENT DATE: 20210105
